FAERS Safety Report 9477838 (Version 2)
Quarter: 2013Q4

REPORT INFORMATION
  Report Type: Spontaneous
  Country: US (occurrence: US)
  Receive Date: 20130827
  Receipt Date: 20131001
  Transmission Date: 20140711
  Serious: Yes (Other)
  Sender: FDA-Public Use
  Company Number: US-ASTRAZENECA-2013SE64488

PATIENT
  Age: 64 Year
  Sex: Male
  Weight: 84.4 kg

DRUGS (9)
  1. METOPROLOL SUCCINATE [Suspect]
     Indication: BLOOD PRESSURE ABNORMAL
     Route: 048
  2. CRESTOR [Suspect]
     Indication: LOW DENSITY LIPOPROTEIN INCREASED
     Route: 048
     Dates: start: 20130813
  3. CRESTOR [Suspect]
     Indication: HIGH DENSITY LIPOPROTEIN DECREASED
     Route: 048
     Dates: start: 20130813
  4. PLAVIX [Concomitant]
     Indication: ANTIPLATELET THERAPY
  5. LOSARTAN [Concomitant]
  6. AMLODIPINE [Concomitant]
     Indication: BLOOD PRESSURE ABNORMAL
  7. METFORMIN [Concomitant]
     Indication: BLOOD GLUCOSE ABNORMAL
  8. ASPIRIN [Concomitant]
  9. STATINS [Concomitant]

REACTIONS (11)
  - Myocardial infarction [Unknown]
  - Blood cholesterol abnormal [Unknown]
  - Mobility decreased [Unknown]
  - Tenderness [Not Recovered/Not Resolved]
  - Nerve injury [Not Recovered/Not Resolved]
  - Muscle strain [Not Recovered/Not Resolved]
  - Pain [Not Recovered/Not Resolved]
  - Discomfort [Not Recovered/Not Resolved]
  - Neuralgia [Not Recovered/Not Resolved]
  - Muscular weakness [Not Recovered/Not Resolved]
  - Neck pain [Not Recovered/Not Resolved]
